FAERS Safety Report 10476178 (Version 1)
Quarter: 2014Q3

REPORT INFORMATION
  Report Type: Spontaneous
  Country: US (occurrence: None)
  Receive Date: 20140923
  Receipt Date: 20140923
  Transmission Date: 20150326
  Serious: Yes (Other)
  Sender: FDA-Public Use
  Company Number: PR 1342

PATIENT
  Sex: Female

DRUGS (1)
  1. METHYLENE BLUE. [Suspect]
     Active Substance: METHYLENE BLUE
     Dates: start: 20140522, end: 20140530

REACTIONS (2)
  - Soft tissue necrosis [None]
  - Skin discolouration [None]

NARRATIVE: CASE EVENT DATE: 20140522
